FAERS Safety Report 7491122-X (Version None)
Quarter: 2011Q2

REPORT INFORMATION
  Report Type: 
  Country: None (occurrence: None)
  Receive Date: 20110519
  Receipt Date: 20110509
  Transmission Date: 20111010
  Serious: Yes (Other)
  Sender: FDA-Public Use
  Company Number: DE-JNJFOC-20110202047

PATIENT
  Sex: Male
  Weight: 56 kg

DRUGS (3)
  1. PRILOCAINE HYDROCHLORIDE [Interacting]
     Indication: SURGERY
     Route: 058
  2. UNKNOWN MEDICATION [Concomitant]
     Indication: NASAL CONGESTION
     Route: 045
  3. CONCERTA [Suspect]
     Indication: ATTENTION DEFICIT/HYPERACTIVITY DISORDER
     Route: 048
     Dates: start: 20040101

REACTIONS (4)
  - CONVULSION [None]
  - DRUG INTERACTION [None]
  - DEPRESSED LEVEL OF CONSCIOUSNESS [None]
  - CIRCULATORY COLLAPSE [None]
